FAERS Safety Report 4472023-8 (Version None)
Quarter: 2004Q4

REPORT INFORMATION
  Report Type: 
  Country: None (occurrence: None)
  Receive Date: 20041006
  Receipt Date: 20040921
  Transmission Date: 20050328
  Serious: Yes (Hospitalization)
  Sender: FDA-Public Use
  Company Number: A-CH2004-07457

PATIENT
  Age: 32 Year
  Sex: Male
  Weight: 65 kg

DRUGS (10)
  1. TRACLEER [Suspect]
     Indication: PULMONARY HYPERTENSION
     Dosage: 62.5 MG , BID, ORAL : 125 MG, BID, ORAL
     Route: 048
     Dates: start: 20021218, end: 20030114
  2. TRACLEER [Suspect]
     Indication: PULMONARY HYPERTENSION
     Dosage: 62.5 MG , BID, ORAL : 125 MG, BID, ORAL
     Route: 048
     Dates: start: 20030115, end: 20040815
  3. DOBUTAMINE [Concomitant]
  4. DOPAMINE HCL [Concomitant]
  5. FUROSEMIDE [Concomitant]
  6. CIPROFLOXACIN [Concomitant]
  7. CLARITHROMYCIN [Concomitant]
  8. DIHYDROCODEINE [Concomitant]
  9. SPIRONOLACTONE [Concomitant]
  10. METOCLOPRAMIDE [Concomitant]

REACTIONS (9)
  - ALANINE AMINOTRANSFERASE INCREASED [None]
  - ASPARTATE AMINOTRANSFERASE INCREASED [None]
  - BLOOD BILIRUBIN INCREASED [None]
  - COUGH [None]
  - LIVER FUNCTION TEST ABNORMAL [None]
  - PULMONARY HYPERTENSION [None]
  - RIGHT VENTRICULAR FAILURE [None]
  - SEPSIS [None]
  - VOMITING [None]
